FAERS Safety Report 8623048-X (Version None)
Quarter: 2012Q3

REPORT INFORMATION
  Report Type: 
  Country: None (occurrence: None)
  Receive Date: 20120827
  Receipt Date: 20120817
  Transmission Date: 20120928
  Serious: Yes (Other)
  Sender: FDA-Public Use
  Company Number: US-JNJFOC-20120809885

PATIENT
  Sex: Female
  Weight: 62.6 kg

DRUGS (10)
  1. PERCOCET [Concomitant]
     Indication: PAIN
     Route: 048
     Dates: start: 20090101
  2. NOVOLOG [Concomitant]
     Indication: DIABETES MELLITUS
     Route: 058
  3. ZYRTEC [Concomitant]
     Indication: SINUS DISORDER
     Route: 048
     Dates: start: 20070101
  4. AN UNKNOWN MEDICATION [Concomitant]
     Indication: HEADACHE
     Route: 048
     Dates: start: 19970101
  5. PREMARIN [Concomitant]
     Indication: HORMONE REPLACEMENT THERAPY
     Route: 048
  6. LANTUS [Concomitant]
     Indication: DIABETES MELLITUS
     Route: 058
  7. AN UNKNOWN MEDICATION [Concomitant]
     Indication: BLOOD CHOLESTEROL INCREASED
     Route: 048
  8. FENTANYL-100 [Suspect]
     Indication: PAIN
     Dosage: NDC# 0781-7243-55
     Route: 062
     Dates: start: 20090101
  9. ZOLOFT [Concomitant]
     Indication: NERVOUS SYSTEM DISORDER
     Route: 048
  10. XANAX [Concomitant]
     Indication: DEPRESSION
     Route: 048
     Dates: start: 20110101

REACTIONS (5)
  - PRODUCT QUALITY ISSUE [None]
  - DRUG INEFFECTIVE [None]
  - SENSORY LOSS [None]
  - CEREBROVASCULAR ACCIDENT [None]
  - GASTROINTESTINAL DISORDER [None]
